FAERS Safety Report 16048931 (Version 1)
Quarter: 2019Q1

REPORT INFORMATION
  Report Type: Spontaneous
  Country: DE (occurrence: DE)
  Receive Date: 20190307
  Receipt Date: 20190307
  Transmission Date: 20190418
  Serious: Yes (Other)
  Sender: FDA-Public Use
  Company Number: DE-TEVA-2019-DE-1019140

PATIENT
  Sex: Female

DRUGS (2)
  1. BISOPROLOL-RATIOPHARM 10 MG TABLETTEN [Suspect]
     Active Substance: BISOPROLOL
     Indication: HYPERTENSION
     Dosage: 20 MILLIGRAM DAILY;
     Route: 048
  2. BISOPROLOL-RATIOPHARM 10 MG TABLETTEN [Suspect]
     Active Substance: BISOPROLOL
     Indication: PALPITATIONS

REACTIONS (3)
  - Scleroderma [Not Recovered/Not Resolved]
  - Skin cancer [Not Recovered/Not Resolved]
  - Alopecia [Not Recovered/Not Resolved]
